FAERS Safety Report 10678214 (Version 3)
Quarter: 2015Q1

REPORT INFORMATION
  Report Type: Report from Study
  Country: IN (occurrence: IN)
  Receive Date: 20141229
  Receipt Date: 20150119
  Transmission Date: 20150720
  Serious: Yes (Death, Life-Threatening)
  Sender: FDA-Public Use
  Company Number: IN-NOVOPROD-433960

PATIENT
  Age: 58 Year
  Sex: Male
  Weight: 73.6 kg

DRUGS (2)
  1. NOVORAPID [Suspect]
     Active Substance: INSULIN ASPART
     Indication: TYPE 2 DIABETES MELLITUS
     Dosage: 24.0,,QD
     Route: 058
     Dates: start: 20141118, end: 20141221
  2. LANTUS [Suspect]
     Active Substance: INSULIN GLARGINE
     Indication: TYPE 2 DIABETES MELLITUS
     Dosage: 8.0,,QD
     Route: 058
     Dates: start: 20141117, end: 20141221

REACTIONS (2)
  - Acute coronary syndrome [Fatal]
  - Cardiac failure congestive [Fatal]

NARRATIVE: CASE EVENT DATE: 20141221
